FAERS Safety Report 4796750-8 (Version None)
Quarter: 2005Q3

REPORT INFORMATION
  Report Type: 
  Country: None (occurrence: None)
  Receive Date: 20050916
  Receipt Date: 20050119
  Transmission Date: 20060218
  Serious: Yes (Hospitalization)
  Sender: FDA-Public Use
  Company Number: US-JNJFOC-20050105163

PATIENT
  Age: 12 Year
  Sex: Female

DRUGS (3)
  1. TOPAMAX [Suspect]
     Indication: ATTENTION DEFICIT/HYPERACTIVITY DISORDER
     Dosage: 50 MG, 2 IN 1 DAY, ORAL
     Route: 048
     Dates: start: 20041006, end: 20041008
  2. DEPAKOTE [Concomitant]
  3. CONCERTA [Concomitant]

REACTIONS (1)
  - PSYCHOTIC DISORDER [None]
